FAERS Safety Report 7241447-8 (Version None)
Quarter: 2011Q1

REPORT INFORMATION
  Report Type: 
  Country: None (occurrence: None)
  Receive Date: 20110124
  Receipt Date: 20110119
  Transmission Date: 20110831
  Serious: Yes (Death)
  Sender: FDA-Public Use
  Company Number: GB-ROCHE-754505

PATIENT
  Sex: Female
  Weight: 63.5 kg

DRUGS (1)
  1. TRASTUZUMAB [Suspect]
     Indication: BREAST CANCER
     Dosage: COMPLETED 6 CYCLES
     Route: 065
     Dates: start: 20090601

REACTIONS (11)
  - DEATH [None]
  - HAEMATURIA [None]
  - DYSSTASIA [None]
  - HEADACHE [None]
  - DIVERTICULITIS [None]
  - ABDOMINAL PAIN [None]
  - URINARY INCONTINENCE [None]
  - CULTURE URINE POSITIVE [None]
  - BLOOD POTASSIUM DECREASED [None]
  - FAECAL INCONTINENCE [None]
  - INTESTINAL PERFORATION [None]
